FAERS Safety Report 8063199-4 (Version None)
Quarter: 2012Q1

REPORT INFORMATION
  Report Type: 
  Country: None (occurrence: None)
  Receive Date: 20120123
  Receipt Date: 20120109
  Transmission Date: 20120608
  Serious: Yes (Hospitalization, Other)
  Sender: FDA-Public Use
  Company Number: PHHY2011DE01523

PATIENT
  Sex: Female
  Weight: 80 kg

DRUGS (16)
  1. FEMARA [Suspect]
     Indication: BREAST CANCER
     Dosage: 2.5 MG, UNK
     Route: 048
     Dates: start: 20060101
  2. VITAMIN D [Concomitant]
  3. IBUPROFEN [Concomitant]
     Dosage: 400 MG, PRN
     Route: 048
  4. RHEUMA VALVERDE [Concomitant]
     Dosage: 600 MG, UNK
     Route: 048
  5. DILTIAZEM HCL [Concomitant]
     Dosage: 90 MG, UNK
     Route: 048
  6. ADRIAMYCIN + CYCLOPHOSPHAMIDE [Concomitant]
     Dosage: UNK UKN, UNK
     Dates: start: 19980101
  7. BONIVA [Concomitant]
     Indication: OESOPHAGITIS
     Route: 048
  8. JODTHYROX [Concomitant]
  9. BONIVA [Concomitant]
  10. DEKRISTOL [Concomitant]
     Dosage: 25000 IU, EVERY 2 WEEKS
     Route: 048
  11. FEMARA [Suspect]
     Dosage: 2.5 MG, UNK
     Route: 048
     Dates: start: 20070101
  12. CANEPHRON [Concomitant]
  13. BISPHOSPHONATES [Concomitant]
  14. MICARDIS [Concomitant]
  15. SYMBICORT METERED [Concomitant]
  16. PRAVASTATIN [Concomitant]

REACTIONS (37)
  - HIATUS HERNIA [None]
  - TRANSIENT ISCHAEMIC ATTACK [None]
  - PSORIASIS [None]
  - CALCIUM DEFICIENCY [None]
  - OBSTRUCTIVE AIRWAYS DISORDER [None]
  - ARRHYTHMIA [None]
  - VULVOVAGINAL DRYNESS [None]
  - ALOPECIA [None]
  - ARTHRITIS [None]
  - FATIGUE [None]
  - SEXUAL DYSFUNCTION [None]
  - BRONCHITIS [None]
  - BRONCHIAL OBSTRUCTION [None]
  - GASTROOESOPHAGEAL REFLUX DISEASE [None]
  - OESOPHAGITIS [None]
  - VAGINAL HAEMORRHAGE [None]
  - NAIL PSORIASIS [None]
  - PHLEBITIS [None]
  - FEELING ABNORMAL [None]
  - UPPER RESPIRATORY TRACT INFECTION [None]
  - RAYNAUD'S PHENOMENON [None]
  - DISLOCATION OF VERTEBRA [None]
  - MYALGIA [None]
  - ARTHRALGIA [None]
  - EPISTAXIS [None]
  - PSORIATIC ARTHROPATHY [None]
  - OSTEOPOROSIS [None]
  - MENTAL IMPAIRMENT [None]
  - DRUG INTOLERANCE [None]
  - SINUSITIS [None]
  - LARYNGITIS [None]
  - GENERAL PHYSICAL HEALTH DETERIORATION [None]
  - ASTHMA [None]
  - LUNG HYPERINFLATION [None]
  - SPINAL OSTEOARTHRITIS [None]
  - GOITRE [None]
  - MUSCLE TIGHTNESS [None]
